FAERS Safety Report 8415697-9 (Version None)
Quarter: 2012Q2

REPORT INFORMATION
  Report Type: 
  Country: None (occurrence: None)
  Receive Date: 20120606
  Receipt Date: 20120601
  Transmission Date: 20120825
  Serious: Yes (Other)
  Sender: FDA-Public Use
  Company Number: US-PFIZER INC-2011079326

PATIENT
  Sex: Female
  Weight: 127 kg

DRUGS (6)
  1. LYRICA [Suspect]
     Indication: FIBROMYALGIA
     Dosage: 150 MG, 1X/DAY
     Route: 048
     Dates: start: 20110401, end: 20111101
  2. LYRICA [Suspect]
     Dosage: 150 MG, 2X/DAY
     Route: 048
     Dates: start: 20120119
  3. LYRICA [Suspect]
     Dosage: 150 MG, 2X/DAY
     Route: 048
     Dates: start: 20110101, end: 20110701
  4. HYDROCODONE [Concomitant]
     Indication: PAIN
     Dosage: 10/325 MG 4 TIMES A DAY
  5. HYDROCODONE BITARTRATE + ACETAMINOPHEN [Concomitant]
     Indication: PAIN
     Dosage: 10/325 MG, EVERY 8 HOURS
  6. LYRICA [Suspect]
     Dosage: 150 MG, 1X/DAY
     Route: 048
     Dates: start: 20110801

REACTIONS (16)
  - NECK PAIN [None]
  - OEDEMA PERIPHERAL [None]
  - HEADACHE [None]
  - BLOOD PRESSURE INCREASED [None]
  - JAW FRACTURE [None]
  - FEELING ABNORMAL [None]
  - DRUG INEFFECTIVE [None]
  - FATIGUE [None]
  - SOMNOLENCE [None]
  - WEIGHT INCREASED [None]
  - NERVOUSNESS [None]
  - MALAISE [None]
  - JOINT SWELLING [None]
  - DEPRESSION [None]
  - PAIN [None]
  - ANGER [None]
